FAERS Safety Report 12766580 (Version 2)
Quarter: 2016Q3

REPORT INFORMATION
  Report Type: Other
  Country: IT (occurrence: IT)
  Receive Date: 20160921
  Receipt Date: 20160927
  Transmission Date: 20161109
  Serious: Yes (Disabling)
  Sender: FDA-Public Use
  Company Number: IT-APOTEX-2016AP012303

PATIENT
  Age: 26 Year
  Sex: Male

DRUGS (4)
  1. TROBALT [Suspect]
     Active Substance: EZOGABINE
     Dosage: UNK
     Route: 065
     Dates: start: 20160619
  2. TROBALT [Suspect]
     Active Substance: EZOGABINE
     Indication: TINNITUS
     Dosage: 150 MG BID
     Route: 048
     Dates: start: 20160611, end: 20160622
  3. PAROXETINE. [Suspect]
     Active Substance: PAROXETINE
     Indication: ANXIETY
  4. PAROXETINE. [Suspect]
     Active Substance: PAROXETINE
     Indication: DEPRESSED MOOD
     Route: 065

REACTIONS (10)
  - Eye pruritus [Not Recovered/Not Resolved]
  - Condition aggravated [Not Recovered/Not Resolved]
  - Anxiety [Not Recovered/Not Resolved]
  - Photopsia [Not Recovered/Not Resolved]
  - Vitreous floaters [Not Recovered/Not Resolved]
  - Off label use [Unknown]
  - Photophobia [Not Recovered/Not Resolved]
  - Vision blurred [Not Recovered/Not Resolved]
  - Lacrimal disorder [Not Recovered/Not Resolved]
  - Visual impairment [Not Recovered/Not Resolved]

NARRATIVE: CASE EVENT DATE: 20160611
